FAERS Safety Report 8794256 (Version 4)
Quarter: 2013Q2

REPORT INFORMATION
  Report Type: Spontaneous
  Country: CA (occurrence: CA)
  Receive Date: 20120918
  Receipt Date: 20130424
  Transmission Date: 20140414
  Serious: Yes (Hospitalization)
  Sender: FDA-Public Use
  Company Number: CA-AMGEN-CANSP2012044307

PATIENT
  Age: 70 Year
  Sex: Female

DRUGS (8)
  1. ENBREL [Suspect]
     Indication: RHEUMATOID ARTHRITIS
     Dosage: 50 MG, QWK
     Route: 058
     Dates: start: 20120524
  2. PLAQUENIL                          /00072602/ [Concomitant]
     Dosage: 200 MG, BID
  3. PANTOLOC                           /01263204/ [Concomitant]
     Dosage: 40 MG, QD
  4. DILTIAZEM [Concomitant]
     Dosage: 240 MG, QD
  5. LIPITOR [Concomitant]
     Dosage: 20 MG, QD
  6. VITAMIN B12                        /00056201/ [Concomitant]
     Dosage: 500 MG, QD
  7. CALCIUM [Concomitant]
     Dosage: UNK UNK, BID
  8. HYDROCHLOROTHIAZIDE [Concomitant]
     Dosage: 25 MG, QD

REACTIONS (8)
  - Diverticulitis [Recovering/Resolving]
  - Malaise [Recovering/Resolving]
  - Local swelling [Recovering/Resolving]
  - Rash [Recovering/Resolving]
  - Rheumatoid arthritis [Unknown]
  - Dysuria [Recovered/Resolved]
  - Back pain [Recovered/Resolved]
  - Urinary tract infection [Recovered/Resolved]
